FAERS Safety Report 7439519-8 (Version None)
Quarter: 2011Q2

REPORT INFORMATION
  Report Type: 
  Country: None (occurrence: None)
  Receive Date: 20110427
  Receipt Date: 20110418
  Transmission Date: 20111010
  Serious: Yes (Hospitalization)
  Sender: FDA-Public Use
  Company Number: US-BRISTOL-MYERS SQUIBB COMPANY-15645484

PATIENT
  Age: 29 Year
  Sex: Male
  Weight: 99 kg

DRUGS (5)
  1. ATAZANAVIR [Suspect]
     Indication: HIV INFECTION
     Route: 048
     Dates: start: 20110310, end: 20110310
  2. ATRIPLA [Suspect]
     Indication: HIV INFECTION
  3. ZOLOFT [Concomitant]
     Route: 048
  4. RITONAVIR [Suspect]
     Indication: HIV INFECTION
     Route: 048
     Dates: start: 20110310, end: 20110310
  5. TRUVADA [Suspect]
     Indication: HIV INFECTION
     Route: 048
     Dates: start: 20110310, end: 20110310

REACTIONS (1)
  - GASTROINTESTINAL TOXICITY [None]
